FAERS Safety Report 23234693 (Version 1)
Quarter: 2023Q4

REPORT INFORMATION
  Report Type: Spontaneous
  Country: US (occurrence: US)
  Receive Date: 20231128
  Receipt Date: 20231128
  Transmission Date: 20240110
  Serious: Yes (Hospitalization, Other)
  Sender: FDA-Public Use
  Company Number: US-TORRENT-00013001

PATIENT
  Age: 26 Year
  Sex: Female

DRUGS (10)
  1. LEVOFLOXACIN [Suspect]
     Active Substance: LEVOFLOXACIN
     Indication: Antifungal prophylaxis
     Dosage: UNKNOWN
     Route: 048
  2. ACYCLOVIR [Suspect]
     Active Substance: ACYCLOVIR
     Indication: Antifungal prophylaxis
     Dosage: UNKNOWN
     Route: 048
  3. POSACONAZOLE [Suspect]
     Active Substance: POSACONAZOLE
     Indication: Antifungal prophylaxis
     Dosage: UNKNOWN
     Route: 048
  4. CASPOFUNGIN [Concomitant]
     Active Substance: CASPOFUNGIN
     Indication: Antifungal prophylaxis
     Dosage: UNKNOWN
     Route: 065
  5. DECITABINE [Concomitant]
     Active Substance: DECITABINE
     Indication: Myeloid leukaemia
     Dosage: UNKNOWN
     Route: 065
  6. FOSMANOGEPIX [Concomitant]
     Active Substance: FOSMANOGEPIX
     Indication: Antifungal prophylaxis
     Dosage: 600 MG EVERY 24 HOURS
     Route: 065
  7. ISAVUCONAZONIUM [Concomitant]
     Active Substance: ISAVUCONAZONIUM
     Indication: Antifungal prophylaxis
     Dosage: UNKNOWN
     Route: 048
  8. AMPHOTERICIN B [Concomitant]
     Active Substance: AMPHOTERICIN B
     Indication: Antifungal prophylaxis
     Route: 065
  9. VENETOCLAX [Concomitant]
     Active Substance: VENETOCLAX
     Indication: Myeloid leukaemia
     Dosage: UNKNOWN
     Route: 065
  10. VORICONAZOLE [Concomitant]
     Active Substance: VORICONAZOLE
     Indication: Antifungal prophylaxis
     Route: 042

REACTIONS (3)
  - Neutrophil count decreased [Recovering/Resolving]
  - Escherichia bacteraemia [Recovered/Resolved]
  - Haemorrhoids [Recovered/Resolved]
